FAERS Safety Report 7875330-1 (Version None)
Quarter: 2011Q4

REPORT INFORMATION
  Report Type: 
  Country: None (occurrence: None)
  Receive Date: 20111031
  Receipt Date: 20110526
  Transmission Date: 20120403
  Serious: Yes (Other)
  Sender: FDA-Public Use
  Company Number: DE-BAYER-2011-039410

PATIENT
  Sex: Female

DRUGS (1)
  1. BETASERON [Suspect]
     Indication: PRODUCT USED FOR UNKNOWN INDICATION

REACTIONS (8)
  - DYSPNOEA [None]
  - HYPERSENSITIVITY [None]
  - CHILLS [None]
  - LIP SWELLING [None]
  - MUCOUS MEMBRANE DISORDER [None]
  - ANGIOEDEMA [None]
  - PYREXIA [None]
  - SWELLING FACE [None]
